FAERS Safety Report 18581766 (Version 1)
Quarter: 2020Q4

REPORT INFORMATION
  Report Type: Spontaneous
  Country: US (occurrence: US)
  Receive Date: 20201204
  Receipt Date: 20201204
  Transmission Date: 20210114
  Serious: No
  Sender: FDA-Public Use
  Company Number: None

PATIENT
  Age: 83 Year
  Sex: Male

DRUGS (6)
  1. DULOXETINE 30MG [Concomitant]
     Active Substance: DULOXETINE
     Dates: start: 20201106
  2. LEVOTHYROXINE 0.100MCG [Concomitant]
     Dates: start: 20201130
  3. CABOMETYX [Suspect]
     Active Substance: CABOZANTINIB S-MALATE
     Indication: RENAL CANCER
     Route: 048
     Dates: start: 20201112
  4. SIMVASTATIN 40 MG [Concomitant]
     Active Substance: SIMVASTATIN
     Dates: start: 20201128
  5. ZOLPIDEM [Concomitant]
     Active Substance: ZOLPIDEM TARTRATE
     Dates: start: 20201021
  6. HYDROCORTISONE 10MG [Concomitant]
     Dates: start: 20201202

REACTIONS (2)
  - Fatigue [None]
  - Rash [None]

NARRATIVE: CASE EVENT DATE: 20201203
